FAERS Safety Report 8733363 (Version 2)
Quarter: 2012Q4

REPORT INFORMATION
  Report Type: 
  Country: US (occurrence: US)
  Receive Date: 20120821
  Receipt Date: 20120920
  Transmission Date: 20130627
  Serious: Yes (Other)
  Sender: FDA-Public Use
  Company Number: US-PFIZER INC-2012199792

PATIENT
  Age: 77 Year
  Sex: Female
  Weight: 54.42 kg

DRUGS (2)
  1. FLAGYL [Suspect]
     Indication: GASTRIC INFECTION
     Dosage: 500 mg, 3x/day
     Dates: start: 20120720
  2. AMLODIPINE [Concomitant]
     Indication: BLOOD PRESSURE INCREASED
     Dosage: 10 mg, daily
     Dates: start: 2009

REACTIONS (1)
  - Neuropathy peripheral [Not Recovered/Not Resolved]
